FAERS Safety Report 9006920 (Version 1)
Quarter: 2013Q1

REPORT INFORMATION
  Report Type: Spontaneous
  Country: US (occurrence: US)
  Receive Date: 20130110
  Receipt Date: 20130110
  Transmission Date: 20140127
  Serious: Yes (Hospitalization)
  Sender: FDA-Public Use
  Company Number: US-009507513-1301USA002454

PATIENT
  Age: 92 Year
  Sex: Female

DRUGS (8)
  1. SINGULAIR [Suspect]
     Route: 048
  2. OMEPRAZOLE [Suspect]
     Route: 048
  3. SYMBICORT [Suspect]
     Dosage: INHALATION
     Route: 055
  4. FUROSEMIDE [Concomitant]
  5. DIFFU-K [Concomitant]
  6. IKOREL [Concomitant]
     Route: 048
  7. SOTALOL HYDROCHLORIDE [Concomitant]
     Route: 048
  8. PENTASA [Concomitant]
     Route: 048

REACTIONS (2)
  - Malaise [Unknown]
  - Hyponatraemia [Unknown]
